FAERS Safety Report 7660991-2 (Version None)
Quarter: 2011Q3

REPORT INFORMATION
  Report Type: 
  Country: None (occurrence: None)
  Receive Date: 20110805
  Receipt Date: 20101007
  Transmission Date: 20111222
  Serious: No
  Sender: FDA-Public Use
  Company Number: US-ABBOTT-10P-163-0677260-00

PATIENT
  Sex: Male
  Weight: 82.174 kg

DRUGS (3)
  1. CADUET [Concomitant]
     Indication: PRODUCT USED FOR UNKNOWN INDICATION
  2. NIASPAN [Suspect]
     Indication: HIGH DENSITY LIPOPROTEIN INCREASED
     Dosage: AT HOUR OF SLEEP
     Route: 048
  3. ASPIRIN [Concomitant]
     Indication: PRODUCT USED FOR UNKNOWN INDICATION
     Dosage: TAKEN WITH NIASPAN AT SAME TIME

REACTIONS (7)
  - RASH [None]
  - PRURITUS [None]
  - HIGH DENSITY LIPOPROTEIN DECREASED [None]
  - MEDICATION ERROR [None]
  - FORMICATION [None]
  - SKIN BURNING SENSATION [None]
  - PAIN [None]
